FAERS Safety Report 7798237-7 (Version None)
Quarter: 2011Q4

REPORT INFORMATION
  Report Type: 
  Country: None (occurrence: None)
  Receive Date: 20111005
  Receipt Date: 20110928
  Transmission Date: 20120403
  Serious: Yes (Death, Hospitalization, Other)
  Sender: FDA-Public Use
  Company Number: JP-JNJFOC-20090608747

PATIENT
  Sex: Female
  Weight: 51 kg

DRUGS (3)
  1. DOXORUBICIN HCL [Suspect]
     Indication: OVARIAN CANCER RECURRENT
     Dosage: CYCLE 1
     Route: 042
     Dates: start: 20090608, end: 20090608
  2. DOXORUBICIN HCL [Suspect]
     Dosage: CYCLE 2
     Route: 042
     Dates: start: 20090715, end: 20090715
  3. SAIREI-TO [Concomitant]
     Indication: OEDEMA
     Route: 048
     Dates: start: 20090717

REACTIONS (4)
  - HEPATIC FUNCTION ABNORMAL [None]
  - OVARIAN CANCER RECURRENT [None]
  - PYREXIA [None]
  - OEDEMA PERIPHERAL [None]
